FAERS Safety Report 4286172-0 (Version None)
Quarter: 2004Q1

REPORT INFORMATION
  Report Type: 
  Country: None (occurrence: None)
  Receive Date: 20040205
  Receipt Date: 20040120
  Transmission Date: 20041129
  Serious: Yes (Other)
  Sender: FDA-Public Use
  Company Number: PHEH2004US01044

PATIENT
  Age: 57 Year
  Sex: Female
  Weight: 95 kg

DRUGS (6)
  1. DIOVAN [Suspect]
     Indication: HYPERTENSION
     Dosage: 80 MG, QD
     Route: 048
     Dates: start: 20020201
  2. ACIPHEX [Concomitant]
     Dosage: 20 MG, BID
  3. IBUPROFEN [Concomitant]
     Indication: ARTHRITIS
     Dosage: 800 MG, TID
  4. DITROPAN                                /USA/ [Concomitant]
     Indication: URINARY INCONTINENCE
     Dosage: 5 MG, TID
  5. TRIAMTERENE AND HYDROCHLOROTHIAZID [Concomitant]
     Indication: FLUID RETENTION
     Dosage: UNK, UNK
  6. ESTRACE [Concomitant]
     Indication: HORMONE REPLACEMENT THERAPY

REACTIONS (2)
  - DIABETES MELLITUS [None]
  - VISUAL ACUITY REDUCED [None]
